FAERS Safety Report 19284116 (Version 2)
Quarter: 2021Q3

REPORT INFORMATION
  Report Type: Report from Study
  Country: US (occurrence: US)
  Receive Date: 20210521
  Receipt Date: 20210713
  Transmission Date: 20211014
  Serious: Yes (Hospitalization, Other)
  Sender: FDA-Public Use
  Company Number: NVSC2021US104426

PATIENT
  Sex: Male

DRUGS (2)
  1. WATER PILLS [Concomitant]
     Active Substance: UNSPECIFIED INGREDIENT
     Indication: PRODUCT USED FOR UNKNOWN INDICATION
     Dosage: UNK
     Route: 065
  2. ENTRESTO [Suspect]
     Active Substance: SACUBITRIL\VALSARTAN
     Indication: PRODUCT USED FOR UNKNOWN INDICATION
     Dosage: 50 MG, BID (24/26 MG)
     Route: 048
     Dates: start: 202103, end: 202106

REACTIONS (8)
  - Meniscus injury [Unknown]
  - Cholecystitis infective [Unknown]
  - Visual impairment [Unknown]
  - Blood potassium increased [Unknown]
  - Injury [Unknown]
  - Dizziness [Unknown]
  - Loss of consciousness [Unknown]
  - Abdominal pain [Unknown]
